FAERS Safety Report 9155987 (Version 1)
Quarter: 2013Q1

REPORT INFORMATION
  Report Type: Spontaneous
  Country: AU (occurrence: AU)
  Receive Date: 20130311
  Receipt Date: 20130311
  Transmission Date: 20140127
  Serious: Yes (Life-Threatening, Disabling)
  Sender: FDA-Public Use
  Company Number: PHHY2013AU023522

PATIENT
  Age: 14 Year
  Sex: Male
  Weight: 43.6 kg

DRUGS (1)
  1. SOMATROPIN [Suspect]
     Indication: BODY HEIGHT BELOW NORMAL
     Dosage: 6.5 MG,/WEEK IN 7 INJECTIONS
     Route: 058
     Dates: start: 20120501, end: 20130303

REACTIONS (4)
  - Brain neoplasm [Not Recovered/Not Resolved]
  - Benign intracranial hypertension [Not Recovered/Not Resolved]
  - Headache [Not Recovered/Not Resolved]
  - Papilloedema [Not Recovered/Not Resolved]
